FAERS Safety Report 4929835-3 (Version None)
Quarter: 2006Q1

REPORT INFORMATION
  Report Type: 
  Country: None (occurrence: None)
  Receive Date: 20060127
  Receipt Date: 20051018
  Transmission Date: 20060701
  Serious: Yes (Other)
  Sender: FDA-Public Use
  Company Number: 2005144084

PATIENT
  Age: 48 Year
  Sex: Female
  Weight: 63.5036 kg

DRUGS (10)
  1. LYRICA [Suspect]
     Indication: FIBROMYALGIA
     Dosage: 50 MG (50 MG 1 IN 1 D) ORAL
     Route: 048
     Dates: start: 20050101
  2. RESTORIL [Concomitant]
  3. ANTIOXIDANTS (ANTIOXIDANTS) [Concomitant]
  4. WELLBUTRIN XL [Concomitant]
  5. FLEXERIL [Concomitant]
  6. XANAX [Concomitant]
  7. LORTAB [Concomitant]
  8. ACTONEL [Concomitant]
  9. ESTRADERM [Concomitant]
  10. CALCIUM(CALCIUM) [Concomitant]

REACTIONS (2)
  - DRUG INEFFECTIVE [None]
  - FEMALE SEXUAL DYSFUNCTION [None]
